FAERS Safety Report 24723107 (Version 2)
Quarter: 2024Q4

REPORT INFORMATION
  Report Type: Spontaneous
  Country: PL (occurrence: PL)
  Receive Date: 20241211
  Receipt Date: 20241217
  Transmission Date: 20250114
  Serious: Yes (Hospitalization, Other)
  Sender: MYLAN
  Company Number: None

PATIENT
  Age: 86 Year
  Sex: Female
  Weight: 91 kg

DRUGS (205)
  1. SIMVASTATIN [Suspect]
     Active Substance: SIMVASTATIN
     Indication: Product used for unknown indication
     Dosage: 40 MILLIGRAM, QD (40MG, OD, NIGHT)
     Route: 065
  2. SIMVASTATIN [Suspect]
     Active Substance: SIMVASTATIN
     Dosage: 40 MILLIGRAM, QD
     Route: 065
  3. SIMVASTATIN [Suspect]
     Active Substance: SIMVASTATIN
     Dosage: 40 MILLIGRAM, QD
     Route: 065
  4. SIMVASTATIN [Suspect]
     Active Substance: SIMVASTATIN
     Dosage: 40 MILLIGRAM, QD
     Route: 065
  5. SIMVASTATIN [Suspect]
     Active Substance: SIMVASTATIN
     Dosage: 40 MILLIGRAM, HS (AT NIGHT)
     Route: 065
  6. SIMVASTATIN [Suspect]
     Active Substance: SIMVASTATIN
     Dosage: 40 MILLIGRAM, QD
     Route: 065
  7. SIMVASTATIN [Suspect]
     Active Substance: SIMVASTATIN
     Dosage: 40 MILLIGRAM, QD
     Route: 065
  8. SIMVASTATIN [Suspect]
     Active Substance: SIMVASTATIN
     Dosage: 40 MILLIGRAM, QD
     Route: 065
  9. SIMVASTATIN [Suspect]
     Active Substance: SIMVASTATIN
     Dosage: 40 MILLIGRAM, QD
     Route: 065
  10. SIMVASTATIN [Suspect]
     Active Substance: SIMVASTATIN
     Dosage: UNK
     Route: 048
  11. SIMVASTATIN [Suspect]
     Active Substance: SIMVASTATIN
     Dosage: UNK
     Route: 048
  12. SIMVASTATIN [Suspect]
     Active Substance: SIMVASTATIN
     Dosage: 40 MILLIGRAM, QD
     Route: 065
  13. SIMVASTATIN [Suspect]
     Active Substance: SIMVASTATIN
     Dosage: 40 MILLIGRAM, QD
     Route: 065
  14. SIMVASTATIN [Suspect]
     Active Substance: SIMVASTATIN
     Dosage: 40 MILLIGRAM, QD
     Route: 065
  15. SIMVASTATIN [Suspect]
     Active Substance: SIMVASTATIN
     Dosage: UNK
     Route: 048
  16. SIMVASTATIN [Suspect]
     Active Substance: SIMVASTATIN
     Dosage: 40 MILLIGRAM, QD
     Route: 065
  17. SIMVASTATIN [Suspect]
     Active Substance: SIMVASTATIN
     Dosage: 40 MILLIGRAM, QD
     Route: 065
  18. SIMVASTATIN [Suspect]
     Active Substance: SIMVASTATIN
     Dosage: 40 MILLIGRAM, QD
     Route: 065
  19. SIMVASTATIN [Suspect]
     Active Substance: SIMVASTATIN
     Dosage: 40 MILLIGRAM, QD
     Route: 065
  20. SIMVASTATIN [Suspect]
     Active Substance: SIMVASTATIN
     Dosage: 40 MILLIGRAM, QD
     Route: 065
  21. SIMVASTATIN [Suspect]
     Active Substance: SIMVASTATIN
     Dosage: 40 MILLIGRAM, QD
     Route: 065
  22. SIMVASTATIN [Suspect]
     Active Substance: SIMVASTATIN
     Dosage: 40 MILLIGRAM, QD
     Route: 065
  23. SIMVASTATIN [Suspect]
     Active Substance: SIMVASTATIN
     Dosage: 40 MILLIGRAM, QD
     Route: 065
  24. BISOPROLOL [Suspect]
     Active Substance: BISOPROLOL
     Indication: Cerebrovascular accident prophylaxis
     Dosage: 10 MILLIGRAM, QD ((1 DAY)OFF LABEL USE)
     Route: 048
  25. BISOPROLOL [Suspect]
     Active Substance: BISOPROLOL
     Dosage: 5 MILLIGRAM, QD
     Route: 048
     Dates: start: 20240807, end: 20240807
  26. BISOPROLOL [Suspect]
     Active Substance: BISOPROLOL
     Dosage: 5 MILLIGRAM, QD
     Route: 048
  27. BISOPROLOL [Suspect]
     Active Substance: BISOPROLOL
     Dosage: 10 MILLIGRAM, QD
     Route: 048
     Dates: start: 20240807, end: 20240807
  28. LANSOPRAZOLE [Suspect]
     Active Substance: LANSOPRAZOLE
     Indication: Atrial fibrillation
     Dosage: 30 MILLIGRAM, QD (MORNING)
     Route: 065
  29. LANSOPRAZOLE [Suspect]
     Active Substance: LANSOPRAZOLE
     Dosage: UNK
     Route: 065
  30. LANSOPRAZOLE [Suspect]
     Active Substance: LANSOPRAZOLE
     Dosage: 10 MILLIGRAM, QD
     Route: 065
  31. LANSOPRAZOLE [Suspect]
     Active Substance: LANSOPRAZOLE
     Dosage: 10 MILLIGRAM, QD
     Route: 065
  32. LANSOPRAZOLE [Suspect]
     Active Substance: LANSOPRAZOLE
     Dosage: 30 MILLIGRAM, QD
     Route: 065
  33. LANSOPRAZOLE [Suspect]
     Active Substance: LANSOPRAZOLE
     Dosage: 10 MILLIGRAM, QD
     Route: 065
     Dates: end: 20180218
  34. LANSOPRAZOLE [Suspect]
     Active Substance: LANSOPRAZOLE
     Dosage: 5 MILLIGRAM, QD
     Route: 065
     Dates: start: 20220207, end: 20220207
  35. LANSOPRAZOLE [Suspect]
     Active Substance: LANSOPRAZOLE
     Dosage: 10 MILLIGRAM, QD
     Route: 065
     Dates: start: 20180207, end: 20180218
  36. LANSOPRAZOLE [Suspect]
     Active Substance: LANSOPRAZOLE
     Dosage: 5 MILLIGRAM, QD
     Route: 065
     Dates: start: 20220207, end: 20220218
  37. CANDESARTAN [Suspect]
     Active Substance: CANDESARTAN
     Indication: Cerebrovascular accident prophylaxis
     Dosage: 2 MILLIGRAM, QD ((MORNING)OFF LABEL DOSING FREQUENCY)
     Route: 048
  38. CANDESARTAN [Suspect]
     Active Substance: CANDESARTAN
     Dosage: UNK
     Route: 065
  39. CANDESARTAN [Suspect]
     Active Substance: CANDESARTAN
     Dosage: UNK
     Route: 065
  40. CANDESARTAN [Suspect]
     Active Substance: CANDESARTAN
     Dosage: 2 MILLIGRAM, QD (MORNING)
     Route: 048
  41. CANDESARTAN [Suspect]
     Active Substance: CANDESARTAN
     Dosage: 2 MILLIGRAM, QD (MORNING)
     Route: 048
  42. CANDESARTAN [Suspect]
     Active Substance: CANDESARTAN
     Dosage: 2 MILLIGRAM, QD (MORNING)
     Route: 048
  43. CANDESARTAN [Suspect]
     Active Substance: CANDESARTAN
     Dosage: 2 MILLIGRAM, QD (MORNING)
     Route: 048
  44. CANDESARTAN [Suspect]
     Active Substance: CANDESARTAN
     Dosage: 2 MILLIGRAM, QD (MORNING)
     Route: 048
  45. CANDESARTAN [Suspect]
     Active Substance: CANDESARTAN
     Dosage: 2 MILLIGRAM, QD
     Route: 048
  46. CANDESARTAN [Suspect]
     Active Substance: CANDESARTAN
     Dosage: 2 MILLIGRAM, QD (OFF LABEL USE)
     Route: 048
  47. CANDESARTAN [Suspect]
     Active Substance: CANDESARTAN
     Dosage: 2 MILLIGRAM, QD (OFF LABEL USE)
     Route: 048
  48. CANDESARTAN [Suspect]
     Active Substance: CANDESARTAN
     Dosage: 10 MILLIGRAM, QD
     Route: 048
  49. CANDESARTAN [Suspect]
     Active Substance: CANDESARTAN
     Dosage: 1 DOSAGE FORM, QD
     Route: 065
  50. CETIRIZINE [Suspect]
     Active Substance: CETIRIZINE HYDROCHLORIDE
     Indication: Product used for unknown indication
     Dosage: 10 MILLIGRAM, QD (MORNING)
     Route: 065
  51. CETIRIZINE [Suspect]
     Active Substance: CETIRIZINE HYDROCHLORIDE
     Dosage: 10 MILLIGRAM, QD (MORNING)
     Route: 065
  52. CETIRIZINE [Suspect]
     Active Substance: CETIRIZINE HYDROCHLORIDE
     Dosage: 10 MILLIGRAM, QD (MORNING)
     Route: 065
  53. CETIRIZINE [Suspect]
     Active Substance: CETIRIZINE HYDROCHLORIDE
     Dosage: 10 MILLIGRAM, QD (MORNING)
     Route: 065
  54. CETIRIZINE [Suspect]
     Active Substance: CETIRIZINE HYDROCHLORIDE
     Dosage: 10 MILLIGRAM, QD (MORNING)
     Route: 065
  55. CETIRIZINE [Suspect]
     Active Substance: CETIRIZINE HYDROCHLORIDE
     Dosage: 10 MILLIGRAM, QD (MORNING)
     Route: 065
  56. CETIRIZINE [Suspect]
     Active Substance: CETIRIZINE HYDROCHLORIDE
     Dosage: 10 MILLIGRAM, QD (MORNING)
     Route: 065
  57. CETIRIZINE [Suspect]
     Active Substance: CETIRIZINE HYDROCHLORIDE
     Dosage: 10 MILLIGRAM, QD (MORNING)
     Route: 065
  58. CETIRIZINE [Suspect]
     Active Substance: CETIRIZINE HYDROCHLORIDE
     Dosage: 10 MILLIGRAM, QD (MORNING)
     Route: 065
  59. CETIRIZINE [Suspect]
     Active Substance: CETIRIZINE HYDROCHLORIDE
     Dosage: 1 DOSAGE FORM, QD
     Route: 065
  60. CETIRIZINE [Suspect]
     Active Substance: CETIRIZINE HYDROCHLORIDE
     Dosage: 6.25 MILLIGRAM, QD
     Route: 065
  61. ISOSORBIDE [Suspect]
     Active Substance: ISOSORBIDE
     Indication: Product used for unknown indication
     Dosage: 50 MILLIGRAM, QD (MORNING)
     Route: 065
  62. ISOSORBIDE [Suspect]
     Active Substance: ISOSORBIDE
     Dosage: 50 MILLIGRAM, QD (MORNING)
     Route: 065
  63. ISOSORBIDE [Suspect]
     Active Substance: ISOSORBIDE
     Dosage: UNK
     Route: 065
  64. ISOSORBIDE [Suspect]
     Active Substance: ISOSORBIDE
     Dosage: 50 MILLIGRAM, QD (MORNING)
     Route: 065
  65. ISOSORBIDE [Suspect]
     Active Substance: ISOSORBIDE
     Dosage: 50 MILLIGRAM, QD (MORNING)
     Route: 065
  66. ISOSORBIDE [Suspect]
     Active Substance: ISOSORBIDE
     Dosage: 50 MILLIGRAM, QD (MORNING)
     Route: 065
  67. ISOSORBIDE [Suspect]
     Active Substance: ISOSORBIDE
     Dosage: 50 MILLIGRAM, QD (MORNING)
     Route: 065
  68. ISOSORBIDE [Suspect]
     Active Substance: ISOSORBIDE
     Dosage: 50 MILLIGRAM, QD (MORNING)
     Route: 065
  69. ISOSORBIDE [Suspect]
     Active Substance: ISOSORBIDE
     Dosage: 50 MILLIGRAM, QD (MORNING)
     Route: 065
  70. ISOSORBIDE [Suspect]
     Active Substance: ISOSORBIDE
     Dosage: UNK
     Route: 065
  71. ISOSORBIDE [Suspect]
     Active Substance: ISOSORBIDE
     Dosage: 50 MILLIGRAM, QD (MORNING)
     Route: 065
  72. DIGOXIN [Suspect]
     Active Substance: DIGOXIN
     Indication: Cerebrovascular accident prophylaxis
     Dosage: 62.5 MICROGRAM (MORNING)
     Route: 055
  73. DIGOXIN [Suspect]
     Active Substance: DIGOXIN
     Dosage: UNK
     Route: 065
  74. DIGOXIN [Suspect]
     Active Substance: DIGOXIN
     Dosage: 62.5 GRAM (MORNING)
     Route: 065
  75. DIGOXIN [Suspect]
     Active Substance: DIGOXIN
     Dosage: 62.5 MICROGRAM (MORNING)
     Route: 065
  76. DIGOXIN [Suspect]
     Active Substance: DIGOXIN
     Dosage: 62.5 MICROGRAM, QD
     Route: 065
  77. DIGOXIN [Suspect]
     Active Substance: DIGOXIN
     Dosage: 62.5 MICROGRAM, QD
     Route: 065
  78. DIGOXIN [Suspect]
     Active Substance: DIGOXIN
     Dosage: 62.5 MICROGRAM, QD
     Route: 065
  79. DIGOXIN [Suspect]
     Active Substance: DIGOXIN
     Dosage: 62.5 MICROGRAM, QD
     Route: 065
  80. DIGOXIN [Suspect]
     Active Substance: DIGOXIN
     Dosage: 62.5 MICROGRAM, QD
     Route: 065
  81. DIGOXIN [Suspect]
     Active Substance: DIGOXIN
     Dosage: 62.5 MICROGRAM, QD
     Route: 065
  82. DIGOXIN [Suspect]
     Active Substance: DIGOXIN
     Dosage: 1 MICROGRAM, QD
     Route: 065
  83. DIGOXIN [Suspect]
     Active Substance: DIGOXIN
     Dosage: 4 MICROGRAM, QD
     Route: 065
  84. DIGOXIN [Suspect]
     Active Substance: DIGOXIN
     Dosage: 50 MICROGRAM, QD
     Route: 065
  85. DIGOXIN [Suspect]
     Active Substance: DIGOXIN
     Dosage: 63 DOSAGE FORM, QD
     Route: 065
  86. DIGOXIN [Suspect]
     Active Substance: DIGOXIN
     Dosage: 50 MILLIGRAM
     Route: 065
  87. LEVOTHYROXINE SODIUM [Suspect]
     Active Substance: LEVOTHYROXINE SODIUM
     Indication: Product used for unknown indication
     Dosage: 125 MICROGRAM, QD (MORNING)
     Route: 065
  88. LEVOTHYROXINE SODIUM [Suspect]
     Active Substance: LEVOTHYROXINE SODIUM
     Dosage: 50 MICROGRAM, QD (MORNING)
     Route: 065
  89. LEVOTHYROXINE SODIUM [Suspect]
     Active Substance: LEVOTHYROXINE SODIUM
     Dosage: 1 DOSAGE FORM, QD (MORNING)
     Route: 065
  90. LEVOTHYROXINE SODIUM [Suspect]
     Active Substance: LEVOTHYROXINE SODIUM
     Dosage: 50 GRAM, QD (MORNING)
     Route: 065
  91. LEVOTHYROXINE SODIUM [Suspect]
     Active Substance: LEVOTHYROXINE SODIUM
     Dosage: 1 DOSAGE FORM, QD (MORNING)
     Route: 065
  92. LEVOTHYROXINE SODIUM [Suspect]
     Active Substance: LEVOTHYROXINE SODIUM
     Dosage: 1 DOSAGE FORM, QD (MORNING)
     Route: 065
  93. LEVOTHYROXINE SODIUM [Suspect]
     Active Substance: LEVOTHYROXINE SODIUM
     Dosage: 125 MICROGRAM, QD (MORNING)
     Route: 065
  94. LEVOTHYROXINE SODIUM [Suspect]
     Active Substance: LEVOTHYROXINE SODIUM
     Dosage: 3 MILLIGRAM, QD
     Route: 065
  95. LEVOTHYROXINE SODIUM [Suspect]
     Active Substance: LEVOTHYROXINE SODIUM
     Dosage: 5 MILLIGRAM, QD
     Route: 065
  96. LEVOTHYROXINE SODIUM [Suspect]
     Active Substance: LEVOTHYROXINE SODIUM
     Dosage: 12 MICROGRAM, QD
     Route: 065
  97. LEVOTHYROXINE SODIUM [Suspect]
     Active Substance: LEVOTHYROXINE SODIUM
     Dosage: 50 MILLIGRAM, QD
     Route: 065
  98. LEVOTHYROXINE SODIUM [Suspect]
     Active Substance: LEVOTHYROXINE SODIUM
     Dosage: 10 MILLIGRAM, QD
     Route: 065
  99. LEVOTHYROXINE SODIUM [Suspect]
     Active Substance: LEVOTHYROXINE SODIUM
     Dosage: 30 MILLIGRAM, QD (ONCE DAILY MORNING)
     Route: 065
  100. LEVOTHYROXINE SODIUM [Suspect]
     Active Substance: LEVOTHYROXINE SODIUM
     Dosage: 2 MILLIGRAM, QD
     Route: 065
  101. ELIQUIS [Suspect]
     Active Substance: APIXABAN
     Indication: Atrial fibrillation
     Dosage: 10 MILLIGRAM, QD
     Route: 065
  102. ELIQUIS [Suspect]
     Active Substance: APIXABAN
     Indication: Cerebrovascular accident prophylaxis
     Dosage: 10 MILLIGRAM, QD
     Route: 065
  103. ELIQUIS [Suspect]
     Active Substance: APIXABAN
     Dosage: UNK
     Route: 065
  104. ELIQUIS [Suspect]
     Active Substance: APIXABAN
     Dosage: 10 MILLIGRAM, QD
     Route: 065
  105. ELIQUIS [Suspect]
     Active Substance: APIXABAN
     Dosage: 5 MILLIGRAM, QD
     Route: 065
  106. ELIQUIS [Suspect]
     Active Substance: APIXABAN
     Dosage: 10 MILLIGRAM, QD
     Route: 065
  107. ELIQUIS [Suspect]
     Active Substance: APIXABAN
     Dosage: 10 MILLIGRAM, QD
     Route: 065
  108. ELIQUIS [Suspect]
     Active Substance: APIXABAN
     Dosage: 10 MILLIGRAM, QD
     Route: 065
  109. ELIQUIS [Suspect]
     Active Substance: APIXABAN
     Dosage: 5 MILLIGRAM, QD (5MG DAILY)
     Route: 065
  110. LINAGLIPTIN [Suspect]
     Active Substance: LINAGLIPTIN
     Indication: Product used for unknown indication
     Dosage: 5 MILLIGRAM, QD
     Route: 065
  111. LINAGLIPTIN [Suspect]
     Active Substance: LINAGLIPTIN
     Dosage: 5 MILLIGRAM, QD
     Route: 065
  112. LINAGLIPTIN [Suspect]
     Active Substance: LINAGLIPTIN
     Dosage: 5 MILLIGRAM, QD
     Route: 065
  113. LINAGLIPTIN [Suspect]
     Active Substance: LINAGLIPTIN
     Dosage: 5 MILLIGRAM, QD
     Route: 065
  114. LINAGLIPTIN [Suspect]
     Active Substance: LINAGLIPTIN
     Dosage: 5 MILLIGRAM, QD
     Route: 065
  115. LINAGLIPTIN [Suspect]
     Active Substance: LINAGLIPTIN
     Dosage: 5 MILLIGRAM, QD
     Route: 065
  116. LINAGLIPTIN [Suspect]
     Active Substance: LINAGLIPTIN
     Dosage: 5 MILLIGRAM, QD
     Route: 065
  117. LINAGLIPTIN [Suspect]
     Active Substance: LINAGLIPTIN
     Dosage: 5 MILLIGRAM, QD
     Route: 065
  118. LINAGLIPTIN [Suspect]
     Active Substance: LINAGLIPTIN
     Dosage: 5 MILLIGRAM, QD
     Route: 065
  119. LINAGLIPTIN [Suspect]
     Active Substance: LINAGLIPTIN
     Dosage: 5 MILLIGRAM, QD
     Route: 065
  120. HYDROCHLOROTHIAZIDE [Suspect]
     Active Substance: HYDROCHLOROTHIAZIDE
     Indication: Cerebrovascular accident prophylaxis
     Dosage: 2 MILLIGRAM, QD (MORNING)
     Route: 065
  121. HYDROCHLOROTHIAZIDE [Suspect]
     Active Substance: HYDROCHLOROTHIAZIDE
     Dosage: 2 MILLIGRAM, QD (MORNING)
     Route: 065
  122. HYDROCHLOROTHIAZIDE [Suspect]
     Active Substance: HYDROCHLOROTHIAZIDE
     Dosage: 2 MILLIGRAM, QD (MORNING)
     Route: 065
  123. HYDROCHLOROTHIAZIDE [Suspect]
     Active Substance: HYDROCHLOROTHIAZIDE
     Dosage: 2 MILLIGRAM, QD (MORNING)
     Route: 065
  124. HYDROCHLOROTHIAZIDE [Suspect]
     Active Substance: HYDROCHLOROTHIAZIDE
     Dosage: 1 DOSAGE FORM, QD (MORNING)
     Route: 065
  125. HYDROCHLOROTHIAZIDE [Suspect]
     Active Substance: HYDROCHLOROTHIAZIDE
     Dosage: 2 MILLIGRAM, QD (MORNING)
     Route: 065
  126. HYDROCHLOROTHIAZIDE [Suspect]
     Active Substance: HYDROCHLOROTHIAZIDE
     Dosage: 2 MILLIGRAM, QD (MORNING)
     Route: 065
  127. HYDROCHLOROTHIAZIDE [Suspect]
     Active Substance: HYDROCHLOROTHIAZIDE
     Dosage: 2 MILLIGRAM, QD (MORNING)
     Route: 065
  128. LEVOTHYROXINE SODIUM [Suspect]
     Active Substance: LEVOTHYROXINE SODIUM
     Indication: Product used for unknown indication
     Dosage: 1 DOSAGE FORM, QD
     Route: 065
  129. LEVOTHYROXINE SODIUM [Suspect]
     Active Substance: LEVOTHYROXINE SODIUM
     Dosage: 50 MILLIGRAM, QD
     Route: 065
  130. IMDUR [Suspect]
     Active Substance: ISOSORBIDE MONONITRATE
     Indication: Product used for unknown indication
     Dosage: 50 MILLIGRAM, QD
     Route: 065
  131. IMDUR [Suspect]
     Active Substance: ISOSORBIDE MONONITRATE
     Dosage: 50 MILLIGRAM, QD
     Route: 065
  132. IMDUR [Suspect]
     Active Substance: ISOSORBIDE MONONITRATE
     Dosage: UNK
     Route: 065
  133. IMDUR [Suspect]
     Active Substance: ISOSORBIDE MONONITRATE
     Dosage: 50 MILLIGRAM, QD
     Route: 065
  134. IMDUR [Suspect]
     Active Substance: ISOSORBIDE MONONITRATE
     Dosage: 50 MILLIGRAM, QD
     Route: 065
  135. IMDUR [Suspect]
     Active Substance: ISOSORBIDE MONONITRATE
     Dosage: 50 MILLIGRAM, QD
     Route: 065
  136. IMDUR [Suspect]
     Active Substance: ISOSORBIDE MONONITRATE
     Dosage: 50 MILLIGRAM, QD
     Route: 065
  137. IMDUR [Suspect]
     Active Substance: ISOSORBIDE MONONITRATE
     Dosage: 50 MILLIGRAM, QD
     Route: 065
  138. ISOSORBIDE DINITRATE [Suspect]
     Active Substance: ISOSORBIDE DINITRATE
     Indication: Product used for unknown indication
     Dosage: 50 MILLIGRAM, QD (ONCE A DAY, MORNING))
     Route: 048
  139. ISOSORBIDE DINITRATE [Suspect]
     Active Substance: ISOSORBIDE DINITRATE
     Dosage: UNK, QD
     Route: 065
  140. ISOSORBIDE DINITRATE [Suspect]
     Active Substance: ISOSORBIDE DINITRATE
     Dosage: 50 MILLIGRAM, QD (ONCE A DAY, MORNING))
     Route: 048
  141. ISOSORBIDE DINITRATE [Suspect]
     Active Substance: ISOSORBIDE DINITRATE
     Dosage: 50 MILLIGRAM, QD (ONCE A DAY, MORNING))
     Route: 048
  142. ISOSORBIDE DINITRATE [Suspect]
     Active Substance: ISOSORBIDE DINITRATE
     Dosage: 50 MILLIGRAM, QD (ONCE A DAY, MORNING))
     Route: 048
  143. ISOSORBIDE DINITRATE [Suspect]
     Active Substance: ISOSORBIDE DINITRATE
     Dosage: 50 MILLIGRAM, QD (ONCE A DAY, MORNING))
     Route: 048
  144. ISOSORBIDE DINITRATE [Suspect]
     Active Substance: ISOSORBIDE DINITRATE
     Dosage: 50 MILLIGRAM, QD (ONCE A DAY, MORNING))
     Route: 048
  145. ISOSORBIDE DINITRATE [Suspect]
     Active Substance: ISOSORBIDE DINITRATE
     Dosage: 50 MILLIGRAM, QD (EVERY MORNING))
     Route: 065
  146. LINAGLIPTIN [Suspect]
     Active Substance: LINAGLIPTIN
     Indication: Product used for unknown indication
     Dosage: 5 MILLIGRAM, QD
     Route: 065
  147. LINAGLIPTIN [Suspect]
     Active Substance: LINAGLIPTIN
     Dosage: 5 MILLIGRAM, QD
     Route: 065
  148. LINAGLIPTIN [Suspect]
     Active Substance: LINAGLIPTIN
     Dosage: 5 MILLIGRAM, QD
     Route: 065
  149. ISOSORBIDE MONONITRATE [Interacting]
     Active Substance: ISOSORBIDE MONONITRATE
     Indication: Product used for unknown indication
     Dosage: 50 MILLIGRAM, QD
     Route: 048
  150. ISOSORBIDE MONONITRATE [Interacting]
     Active Substance: ISOSORBIDE MONONITRATE
     Dosage: UNK
  151. ISOSORBIDE MONONITRATE [Interacting]
     Active Substance: ISOSORBIDE MONONITRATE
     Dosage: UNK
  152. ISOSORBIDE MONONITRATE [Interacting]
     Active Substance: ISOSORBIDE MONONITRATE
     Dosage: UNK
  153. ISOSORBIDE MONONITRATE [Interacting]
     Active Substance: ISOSORBIDE MONONITRATE
     Dosage: 50 MILLIGRAM, QD
     Route: 048
  154. CETIRIZINE HYDROCHLORIDE [Suspect]
     Active Substance: CETIRIZINE HYDROCHLORIDE
     Indication: Product used for unknown indication
     Dosage: 10 MILLIGRAM, QD
     Route: 048
  155. CETIRIZINE HYDROCHLORIDE [Suspect]
     Active Substance: CETIRIZINE HYDROCHLORIDE
     Dosage: 10 MILLIGRAM, QD
     Route: 048
  156. BISOPROLOL FUMARATE [Suspect]
     Active Substance: BISOPROLOL FUMARATE
     Indication: Cerebrovascular accident prophylaxis
     Dosage: 5 MILLIGRAM, QD (OFF LABEL USE)
     Route: 048
  157. BISOPROLOL FUMARATE [Suspect]
     Active Substance: BISOPROLOL FUMARATE
     Dosage: 10 MILLIGRAM, QD
     Route: 048
  158. BISOPROLOL FUMARATE [Suspect]
     Active Substance: BISOPROLOL FUMARATE
     Dosage: 5 MILLIGRAM, QD
     Route: 048
  159. CANDESARTAN [Suspect]
     Active Substance: CANDESARTAN
     Indication: Cerebrovascular accident prophylaxis
     Dosage: 2 MILLIGRAM, QD
     Route: 048
  160. CANDESARTAN [Suspect]
     Active Substance: CANDESARTAN
     Dosage: 10 MILLIGRAM, QD
     Route: 048
  161. CANDESARTAN [Suspect]
     Active Substance: CANDESARTAN
     Dosage: 2 MILLIGRAM, QD
     Route: 048
  162. CANDESARTAN [Suspect]
     Active Substance: CANDESARTAN
     Dosage: 10 MILLIGRAM, QD
     Route: 048
  163. CANDESARTAN [Suspect]
     Active Substance: CANDESARTAN
     Dosage: 2 MILLIGRAM, QD
     Route: 048
  164. CANDESARTAN [Suspect]
     Active Substance: CANDESARTAN
     Dosage: 2 MILLIGRAM, QD
     Route: 048
  165. CANDESARTAN [Suspect]
     Active Substance: CANDESARTAN
     Dosage: 10 MILLIGRAM, QD
     Route: 048
  166. CANDESARTAN [Suspect]
     Active Substance: CANDESARTAN
     Dosage: 2 MILLIGRAM, QD
     Route: 048
  167. CANDESARTAN [Suspect]
     Active Substance: CANDESARTAN
     Dosage: 2 MILLIGRAM, QD
     Route: 048
  168. CETIRIZINE HYDROCHLORIDE [Suspect]
     Active Substance: CETIRIZINE HYDROCHLORIDE
     Indication: Product used for unknown indication
     Dosage: 10 MILLIGRAM, QD
     Route: 048
  169. CETIRIZINE HYDROCHLORIDE [Suspect]
     Active Substance: CETIRIZINE HYDROCHLORIDE
     Dosage: 10 MILLIGRAM, QD
     Route: 048
  170. CETIRIZINE HYDROCHLORIDE [Suspect]
     Active Substance: CETIRIZINE HYDROCHLORIDE
     Dosage: 10 MILLIGRAM, QD
     Route: 048
  171. CETIRIZINE HYDROCHLORIDE [Suspect]
     Active Substance: CETIRIZINE HYDROCHLORIDE
     Dosage: 10 MILLIGRAM, QD
     Route: 048
  172. CETIRIZINE HYDROCHLORIDE [Suspect]
     Active Substance: CETIRIZINE HYDROCHLORIDE
     Dosage: 10 MILLIGRAM, QD
     Route: 048
  173. CETIRIZINE HYDROCHLORIDE [Suspect]
     Active Substance: CETIRIZINE HYDROCHLORIDE
     Dosage: 10 MILLIGRAM, QD
     Route: 048
  174. CETIRIZINE HYDROCHLORIDE [Suspect]
     Active Substance: CETIRIZINE HYDROCHLORIDE
     Dosage: 10 MILLIGRAM, QD
     Route: 048
  175. ELIQUIS [Suspect]
     Active Substance: APIXABAN
     Indication: Atrial fibrillation
     Dosage: 5 MILLIGRAM, QD
     Route: 048
     Dates: start: 20180207
  176. ELIQUIS [Suspect]
     Active Substance: APIXABAN
     Indication: Cerebrovascular accident prophylaxis
  177. APIXABAN [Suspect]
     Active Substance: APIXABAN
     Indication: Cerebrovascular accident prophylaxis
     Dosage: 10 MILLIGRAM, QD
     Route: 042
     Dates: start: 20180207, end: 20180207
  178. APIXABAN [Suspect]
     Active Substance: APIXABAN
     Dosage: 5 MILLIGRAM, QD
     Route: 065
     Dates: start: 20180207, end: 20180207
  179. APIXABAN [Suspect]
     Active Substance: APIXABAN
     Dosage: 10 MILLIGRAM, QD
     Route: 065
     Dates: start: 20180207, end: 20180207
  180. OMEPRAZOLE [Interacting]
     Active Substance: OMEPRAZOLE
     Indication: Product used for unknown indication
     Dosage: 20 MILLIGRAM, BID
     Route: 048
  181. QUETIAPINE [Interacting]
     Active Substance: QUETIAPINE
     Indication: Product used for unknown indication
     Dosage: 25 MILLIGRAM, QD
     Route: 065
  182. METOPROLOL [Concomitant]
     Active Substance: METOPROLOL
     Dosage: 50 MILLIGRAM (1-0-1)
     Route: 065
  183. RAMIPRIL [Concomitant]
     Active Substance: RAMIPRIL
     Dosage: 5 MILLIGRAM, QD (1-0-0)
     Route: 065
  184. TRAMADOL [Concomitant]
     Active Substance: TRAMADOL
     Dosage: 2 DOSAGE FORM, PRN (AS NEEDED, 2 TABLETS)
     Route: 065
  185. LEVOTHYROXINE SODIUM [Concomitant]
     Active Substance: LEVOTHYROXINE SODIUM
     Dosage: UNK 1-0-0
     Route: 065
  186. SPIRONOLACTONE [Concomitant]
     Active Substance: SPIRONOLACTONE
     Dosage: 100 MILLIGRAM (0-1-0)
     Route: 065
  187. DABIGATRAN [Concomitant]
     Active Substance: DABIGATRAN
     Dosage: 220 MILLIGRAM, QD (1-0-1)
     Route: 065
  188. FUROSEMIDE [Concomitant]
     Active Substance: FUROSEMIDE
     Dosage: 40 MILLIGRAM (3 TABLETS EVERY OTHER DAY)
     Route: 065
  189. CITALOPRAM [Concomitant]
     Active Substance: CITALOPRAM
     Dosage: 40 MILLIGRAM (1-0-0)
     Route: 065
  190. HYDROXYZINE [Concomitant]
     Active Substance: HYDROXYZINE HYDROCHLORIDE
     Dosage: 25 MILLIGRAM, PRN (AS NEEDED, TWICE DAILY ON AVERAGE)
     Route: 065
  191. ZOLPIDEM [Concomitant]
     Active Substance: ZOLPIDEM TARTRATE
     Dosage: 10 MILLIGRAM (0-0-1)
     Route: 065
  192. ALPRAZOLAM [Concomitant]
     Active Substance: ALPRAZOLAM
     Dosage: 0.5 MILLIGRAM, PRN (AS NEEDED, TWICE DAILY ON AVERAGE)
     Route: 065
  193. ALLOPURINOL [Concomitant]
     Active Substance: ALLOPURINOL
     Dosage: 100 MILLIGRAM, QD
     Route: 065
  194. ATORVASTATIN [Concomitant]
     Active Substance: ATORVASTATIN
     Dosage: 20 MILLIGRAM, QD (0-0-1)
     Route: 065
  195. HYDROCHLOROTHIAZIDE [Concomitant]
     Active Substance: HYDROCHLOROTHIAZIDE
     Dosage: 25 MILLIGRAM, QD
     Route: 065
  196. GLICLAZIDE [Concomitant]
     Active Substance: GLICLAZIDE
     Dosage: 180 MILLIGRAM, QD
     Route: 065
  197. DEXTROSE [Concomitant]
     Active Substance: DEXTROSE MONOHYDRATE
     Dosage: UNK, PRN1.5+125 MG, AS NEEDED
     Route: 065
  198. BETAHISTINE [Concomitant]
     Active Substance: BETAHISTINE
     Dosage: 24 MILLIGRAM, QD
     Route: 065
  199. POTASSIUM CHLORIDE [Concomitant]
     Active Substance: POTASSIUM CHLORIDE
     Dosage: 391 MILLIGRAM, QOD (1 TABLET EVERY OTHER DAY)
     Route: 065
  200. ACETAMINOPHEN [Concomitant]
     Active Substance: ACETAMINOPHEN
     Dosage: 500 MILLIGRAM, QD
     Route: 065
  201. OMEPRAZOLE [Concomitant]
     Active Substance: OMEPRAZOLE
     Dosage: 40 MILLIGRAM, QD
     Route: 065
  202. ALBUTEROL [Concomitant]
     Active Substance: ALBUTEROL
     Dosage: 100 MICROGRAM, PRN (AS NEEDED)
     Route: 065
  203. METOCLOPRAMIDE [Concomitant]
     Active Substance: METOCLOPRAMIDE
     Dosage: 10 MILLIGRAM, PRN (AS NEEDED IN CASE OF CONSTIPATION,2 TABLETS, BUT FOR MANY MONTHS)
     Route: 065
  204. LEVOTHYROXINE [Concomitant]
     Active Substance: LEVOTHYROXINE
     Dosage: 100 MICROGRAM
     Route: 065
  205. CANDESARTAN [Concomitant]
     Active Substance: CANDESARTAN
     Dosage: 100 MICROGRAM
     Route: 065

REACTIONS (16)
  - Subarachnoid haemorrhage [Recovered/Resolved with Sequelae]
  - Malaise [Unknown]
  - Hypotension [Unknown]
  - Cognitive disorder [Recovered/Resolved]
  - Mobility decreased [Unknown]
  - Diabetes mellitus inadequate control [Unknown]
  - Osteoporosis [Unknown]
  - Hyponatraemia [Unknown]
  - Back pain [Unknown]
  - Depression [Unknown]
  - Abdominal pain upper [Not Recovered/Not Resolved]
  - Nausea [Not Recovered/Not Resolved]
  - Drug interaction [Unknown]
  - Intentional product misuse [Unknown]
  - Intentional product use issue [Unknown]
  - Off label use [Unknown]

NARRATIVE: CASE EVENT DATE: 20180207
